FAERS Safety Report 6592617-3 (Version None)
Quarter: 2010Q1

REPORT INFORMATION
  Report Type: 
  Country: None (occurrence: None)
  Receive Date: 20100222
  Receipt Date: 20100208
  Transmission Date: 20100710
  Serious: Yes (Other)
  Sender: FDA-Public Use
  Company Number: DE-RANBAXY-2010RR-31024

PATIENT
  Age: 66 Year
  Sex: Male

DRUGS (5)
  1. AMLODIPINE [Suspect]
     Dosage: 1 DF, QD
  2. ATACAND 32 [Suspect]
     Dosage: 1 DF, QD
  3. CARVEDILOL 25 [Concomitant]
  4. ASPIRIN [Concomitant]
  5. SIMVA 40 [Concomitant]

REACTIONS (2)
  - HAEMATOMA [None]
  - THROMBOCYTOPENIA [None]
